FAERS Safety Report 22050711 (Version 1)
Quarter: 2023Q1

REPORT INFORMATION
  Report Type: Spontaneous
  Country: US (occurrence: None)
  Receive Date: 20230301
  Receipt Date: 20230301
  Transmission Date: 20230417
  Serious: Yes (Other)
  Sender: FDA-Public Use
  Company Number: 2023A044389

PATIENT
  Age: 1083 Month
  Sex: Female

DRUGS (24)
  1. NEXIUM [Suspect]
     Active Substance: ESOMEPRAZOLE MAGNESIUM
     Route: 048
  2. VENIPUNCTURE [Concomitant]
  3. FAMOTIDINE [Concomitant]
     Active Substance: FAMOTIDINE
  4. PANTOPRAZOLE [Concomitant]
     Active Substance: PANTOPRAZOLE
  5. PHENYTOIN [Concomitant]
     Active Substance: PHENYTOIN
  6. LEVETIR [Concomitant]
  7. PHOSPHORUS [Concomitant]
     Active Substance: PHOSPHORUS
  8. MAGNESIUM [Concomitant]
     Active Substance: MAGNESIUM
  9. DOCUSATE SODIUM [Concomitant]
     Active Substance: DOCUSATE SODIUM
  10. ALBUTEROL [Concomitant]
     Active Substance: ALBUTEROL
  11. LEVETIRACETAM [Concomitant]
     Active Substance: LEVETIRACETAM
  12. ASPIRIN [Concomitant]
     Active Substance: ASPIRIN
  13. LEVOFLOXACIN [Concomitant]
     Active Substance: LEVOFLOXACIN
  14. CEFTRIAXONE [Concomitant]
     Active Substance: CEFTRIAXONE
  15. TYLENOL [Concomitant]
     Active Substance: ACETAMINOPHEN
  16. PROTONIX [Concomitant]
     Active Substance: PANTOPRAZOLE SODIUM
  17. COLACE [Concomitant]
     Active Substance: DOCUSATE SODIUM
  18. AMBIEN [Concomitant]
     Active Substance: ZOLPIDEM TARTRATE
  19. ZOFRAN [Concomitant]
     Active Substance: ONDANSETRON HYDROCHLORIDE
  20. PERCOCET [Concomitant]
     Active Substance: ACETAMINOPHEN\OXYCODONE HYDROCHLORIDE
  21. ACCUNEB [Concomitant]
     Active Substance: ALBUTEROL SULFATE
  22. ZITHROMAX [Concomitant]
     Active Substance: AZITHROMYCIN DIHYDRATE
  23. ATROVENT [Concomitant]
     Active Substance: IPRATROPIUM BROMIDE
  24. SEROQUEL [Concomitant]
     Active Substance: QUETIAPINE FUMARATE

REACTIONS (4)
  - Adenocarcinoma gastric [Unknown]
  - Atelectasis [Unknown]
  - Anaemia [Unknown]
  - Gastrointestinal haemorrhage [Unknown]

NARRATIVE: CASE EVENT DATE: 20130601
